FAERS Safety Report 8417885-4 (Version None)
Quarter: 2012Q2

REPORT INFORMATION
  Report Type: 
  Country: None (occurrence: None)
  Receive Date: 20120607
  Receipt Date: 20120531
  Transmission Date: 20120825
  Serious: No
  Sender: FDA-Public Use
  Company Number: US-PFIZER INC-2011317435

PATIENT
  Sex: Female
  Weight: 92.06 kg

DRUGS (4)
  1. LIPITOR [Concomitant]
     Indication: BLOOD CHOLESTEROL INCREASED
     Dosage: UNK
  2. IBUPROFEN (ADVIL) [Suspect]
     Indication: ARTHRITIS
     Dosage: 400 MG, 4X/DAY
     Route: 048
  3. ALPHAGAN P [Concomitant]
     Indication: GLAUCOMA
     Dosage: UNK
     Route: 047
  4. ALPHAGAN P [Concomitant]
     Indication: MACULAR DEGENERATION

REACTIONS (2)
  - OVERDOSE [None]
  - GLOSSODYNIA [None]
